FAERS Safety Report 8138179-0 (Version None)
Quarter: 2012Q1

REPORT INFORMATION
  Report Type: 
  Country: None (occurrence: None)
  Receive Date: 20120213
  Receipt Date: 20120203
  Transmission Date: 20120608
  Serious: No
  Sender: FDA-Public Use
  Company Number: 2009001531

PATIENT
  Age: 69 Year
  Sex: Female

DRUGS (3)
  1. EYE DROPS (EYE DROPS) DROP [Suspect]
     Indication: PRODUCT USED FOR UNKNOWN INDICATION
     Dosage: UNK, OPHTHALMIC
     Route: 047
  2. TARCEVA [Suspect]
     Indication: LUNG NEOPLASM MALIGNANT
     Dosage: 3 X 25 MG, UID/QD, ORAL 100 MG, UID/QD, ORAL
     Route: 048
     Dates: start: 20090511
  3. TARCEVA [Suspect]
     Indication: LUNG NEOPLASM MALIGNANT
     Dosage: 3 X 25 MG, UID/QD, ORAL 100 MG, UID/QD, ORAL
     Route: 048
     Dates: start: 20090316

REACTIONS (5)
  - ONYCHOMADESIS [None]
  - CORNEAL ABRASION [None]
  - ONYCHOCLASIS [None]
  - INCORRECT DOSE ADMINISTERED [None]
  - DIARRHOEA [None]
